FAERS Safety Report 8391197-X (Version None)
Quarter: 2012Q2

REPORT INFORMATION
  Report Type: 
  Country: None (occurrence: None)
  Receive Date: 20120529
  Receipt Date: 20120524
  Transmission Date: 20120825
  Serious: Yes (Death)
  Sender: FDA-Public Use
  Company Number: JP-SANOFI-AVENTIS-2012SA037603

PATIENT
  Age: 80 Year
  Sex: Male
  Weight: 65 kg

DRUGS (4)
  1. CLOPIDOGREL BISULFATE [Suspect]
     Dosage: STARTING DOSE
     Route: 048
  2. CLOPIDOGREL BISULFATE [Suspect]
     Indication: ACUTE CORONARY SYNDROME
     Dosage: STARTING DOSE
     Route: 048
  3. CLOPIDOGREL BISULFATE [Suspect]
     Dosage: MAINTENANCE DOSE
     Route: 048
  4. CLOPIDOGREL BISULFATE [Suspect]
     Dosage: MAINTENANCE DOSE
     Route: 048

REACTIONS (1)
  - DEATH [None]
